FAERS Safety Report 4337274-1 (Version None)
Quarter: 2004Q2

REPORT INFORMATION
  Report Type: 
  Country: None (occurrence: None)
  Receive Date: 20040408
  Receipt Date: 20040329
  Transmission Date: 20050107
  Serious: No
  Sender: FDA-Public Use
  Company Number: 04P-167-0255626-00

PATIENT
  Sex: Female
  Weight: 60.1 kg

DRUGS (6)
  1. HUMIRA [Suspect]
     Indication: RHEUMATOID ARTHRITIS
     Dosage: 40 MG, SUBCUTANEOUS
     Route: 058
     Dates: start: 20031030, end: 20040223
  2. PREDNISOLONE [Concomitant]
  3. RISEDRONATE SODIUM [Concomitant]
  4. TIBOLONE [Concomitant]
  5. PARAMOL-118 [Concomitant]
  6. LISINOPRIL [Concomitant]

REACTIONS (1)
  - LIVER FUNCTION TEST ABNORMAL [None]
